FAERS Safety Report 9570809 (Version 1)
Quarter: 2013Q3

REPORT INFORMATION
  Report Type: Spontaneous
  Country: US (occurrence: None)
  Receive Date: 20130926
  Receipt Date: 20130926
  Transmission Date: 20140515
  Serious: Yes (Other)
  Sender: FDA-Public Use
  Company Number: None

PATIENT
  Age: 65 Year
  Sex: Male
  Weight: 92.99 kg

DRUGS (1)
  1. LEVAQUIN [Suspect]
     Indication: ORCHITIS NONINFECTIVE

REACTIONS (3)
  - Erectile dysfunction [None]
  - Libido decreased [None]
  - Sexual dysfunction [None]
